FAERS Safety Report 10565649 (Version 1)
Quarter: 2014Q4

REPORT INFORMATION
  Report Type: Spontaneous
  Country: US (occurrence: None)
  Receive Date: 20141104
  Receipt Date: 20141104
  Transmission Date: 20150529
  Serious: Yes (Disabling)
  Sender: FDA-Public Use
  Company Number: None

PATIENT
  Age: 39 Year
  Sex: Female
  Weight: 76.2 kg

DRUGS (1)
  1. ATORVASTIN [Suspect]
     Active Substance: ATORVASTATIN
     Indication: BLOOD CHOLESTEROL INCREASED
     Dosage: 1 PILL
     Route: 048
     Dates: start: 20110914, end: 20140813

REACTIONS (9)
  - Musculoskeletal stiffness [None]
  - Muscle spasms [None]
  - Walking aid user [None]
  - Cognitive disorder [None]
  - Myalgia [None]
  - Parkinson^s disease [None]
  - Dystonia [None]
  - Asthenia [None]
  - Memory impairment [None]
